FAERS Safety Report 4753830-0 (Version None)
Quarter: 2005Q3

REPORT INFORMATION
  Report Type: 
  Country: None (occurrence: None)
  Receive Date: 20050826
  Receipt Date: 20050822
  Transmission Date: 20060218
  Serious: Yes (Hospitalization)
  Sender: FDA-Public Use
  Company Number: US-GLAXOSMITHKLINE-A0571436A

PATIENT
  Sex: Female
  Weight: 45.5 kg

DRUGS (11)
  1. ESKALITH CR [Suspect]
     Dosage: 450MG PER DAY
     Route: 048
  2. PAXIL [Suspect]
     Indication: DEPRESSION
     Dosage: 20MG PER DAY
     Route: 048
     Dates: start: 19930301, end: 19961001
  3. PAXIL CR [Suspect]
     Indication: DEPRESSION
     Dosage: 25MG PER DAY
     Route: 048
  4. WELLBUTRIN XL [Suspect]
     Indication: DEPRESSION
     Route: 048
     Dates: start: 20020101, end: 20020101
  5. KLONOPIN [Concomitant]
  6. ZOLOFT [Concomitant]
  7. ELAVIL [Concomitant]
  8. PERCOCET [Concomitant]
  9. PAIN MEDICATION [Concomitant]
  10. XANAX [Concomitant]
  11. DEPAKOTE [Concomitant]

REACTIONS (23)
  - AGGRESSION [None]
  - ALCOHOL PROBLEM [None]
  - AMNESIA [None]
  - ANGER [None]
  - CHEST PAIN [None]
  - CONVULSION [None]
  - CRYING [None]
  - DEMENTIA [None]
  - DEPENDENCE [None]
  - DRUG INEFFECTIVE [None]
  - DYSGEUSIA [None]
  - EXCITABILITY [None]
  - FATIGUE [None]
  - ILL-DEFINED DISORDER [None]
  - INCREASED APPETITE [None]
  - MENTAL DISORDER [None]
  - NICOTINE DEPENDENCE [None]
  - PATELLA FRACTURE [None]
  - RESPIRATORY TRACT INFECTION [None]
  - SCREAMING [None]
  - STILLBIRTH [None]
  - SUICIDAL IDEATION [None]
  - WEIGHT INCREASED [None]
